FAERS Safety Report 14243008 (Version 1)
Quarter: 2017Q4

REPORT INFORMATION
  Report Type: Spontaneous
  Country: US (occurrence: US)
  Receive Date: 20171201
  Receipt Date: 20171201
  Transmission Date: 20180321
  Serious: No
  Sender: FDA-Public Use
  Company Number: US-BAYER-2017-231271

PATIENT
  Age: 80 Year
  Sex: Female
  Weight: 73 kg

DRUGS (3)
  1. ALEVE [Suspect]
     Active Substance: NAPROXEN SODIUM
     Indication: MUSCLE SPASMS
     Dosage: 1 DF, QD
     Dates: start: 201711, end: 20171106
  2. BAYER ASPIRIN [Suspect]
     Active Substance: ASPIRIN
     Route: 048
     Dates: start: 201711, end: 20171106
  3. ALEVE [Suspect]
     Active Substance: NAPROXEN SODIUM
     Indication: PAIN
     Dosage: `2 DF, Q4HR
     Route: 048
     Dates: start: 2016, end: 2017

REACTIONS (2)
  - Contusion [Unknown]
  - Contusion [Unknown]

NARRATIVE: CASE EVENT DATE: 201711
